FAERS Safety Report 4779962-9 (Version None)
Quarter: 2005Q3

REPORT INFORMATION
  Report Type: 
  Country: None (occurrence: None)
  Receive Date: 20050927
  Receipt Date: 20050915
  Transmission Date: 20060218
  Serious: Yes (Hospitalization)
  Sender: FDA-Public Use
  Company Number: RO-GLAXOSMITHKLINE-B0394268A

PATIENT
  Age: 2 Year
  Sex: Female

DRUGS (1)
  1. ZENTEL [Suspect]
     Indication: ASCARIASIS
     Dates: start: 20050804, end: 20050804

REACTIONS (3)
  - BODY TEMPERATURE INCREASED [None]
  - CONVULSION [None]
  - PYREXIA [None]
